FAERS Safety Report 13941380 (Version 1)
Quarter: 2017Q3

REPORT INFORMATION
  Report Type: Spontaneous
  Country: US (occurrence: US)
  Receive Date: 20170906
  Receipt Date: 20170906
  Transmission Date: 20171127
  Serious: No
  Sender: FDA-Public Use
  Company Number: US-ASTRAZENECA-2017SE85733

PATIENT
  Age: 899 Month
  Sex: Female
  Weight: 63.5 kg

DRUGS (3)
  1. BYETTA [Suspect]
     Active Substance: EXENATIDE
     Indication: TYPE 2 DIABETES MELLITUS
     Route: 058
  2. INSULIN [Concomitant]
     Active Substance: INSULIN NOS
     Dosage: AS REQUIRED
  3. INSULIN [Concomitant]
     Active Substance: INSULIN NOS
     Dosage: 4.0MG AS REQUIRED

REACTIONS (6)
  - Feeling abnormal [Unknown]
  - Inability to afford medication [Unknown]
  - Dizziness [Not Recovered/Not Resolved]
  - Blood glucose increased [Unknown]
  - Product storage error [Unknown]
  - Panic reaction [Unknown]

NARRATIVE: CASE EVENT DATE: 201708
